FAERS Safety Report 25270322 (Version 7)
Quarter: 2025Q4

REPORT INFORMATION
  Report Type: Report from Study
  Country: US (occurrence: None)
  Receive Date: 20250505
  Receipt Date: 20251103
  Transmission Date: 20260118
  Serious: Yes (Hospitalization, Other)
  Sender: UCB
  Company Number: US-UCBSA-2025016179

PATIENT
  Age: 13 Year
  Weight: 51.8 kg

DRUGS (6)
  1. FENFLURAMINE [Suspect]
     Active Substance: FENFLURAMINE
     Indication: Lennox-Gastaut syndrome
     Dosage: 6 MILLILITER, 2X/DAY (BID)
  2. FENFLURAMINE [Suspect]
     Active Substance: FENFLURAMINE
     Dosage: 3ML BID FOR 7 DAYS, THEN 4ML BID FOR 7 DAYS, THEN 5ML FOR 7 DAYS, AND THEN 6ML BID THEREAFTER
  3. FENFLURAMINE [Suspect]
     Active Substance: FENFLURAMINE
     Dosage: 6 MILLILITER, 2X/DAY (BID)
  4. FENFLURAMINE [Suspect]
     Active Substance: FENFLURAMINE
     Dosage: 4.6 MILLILITER, 2X/DAY (BID)
  5. FENFLURAMINE [Suspect]
     Active Substance: FENFLURAMINE
     Dosage: 4.6 MILLILITER, 2X/DAY (BID)
  6. FENFLURAMINE [Suspect]
     Active Substance: FENFLURAMINE
     Dosage: 4.6 MILLILITER, 2X/DAY (BID)

REACTIONS (13)
  - Hospitalisation [Recovered/Resolved]
  - Renal failure [Not Recovered/Not Resolved]
  - Haemodialysis [Not Recovered/Not Resolved]
  - Tricuspid valve incompetence [Unknown]
  - Pericardial effusion [Recovered/Resolved]
  - Mitral valve incompetence [Unknown]
  - Peritoneal dialysis [Not Recovered/Not Resolved]
  - Systemic infection [Recovered/Resolved]
  - Sepsis [Recovered/Resolved]
  - Left ventricular enlargement [Unknown]
  - Coronary artery dilatation [Unknown]
  - Left atrial dilatation [Unknown]
  - Drug ineffective [Unknown]
